FAERS Safety Report 5244241-2 (Version None)
Quarter: 2007Q1

REPORT INFORMATION
  Report Type: 
  Country: None (occurrence: None)
  Receive Date: 20070216
  Receipt Date: 20070201
  Transmission Date: 20070707
  Serious: Yes (Hospitalization, Other)
  Sender: FDA-Public Use
  Company Number: POMP-10954

PATIENT
  Age: 24 Month
  Sex: Female

DRUGS (2)
  1. MYOZYME [Suspect]
     Indication: GLYCOGEN STORAGE DISEASE TYPE II
     Dosage: 20 MG/KG Q2WKS; IV
     Route: 042
     Dates: start: 20060425
  2. ALPHA-GLUCOSIDASE (HUMAN, RECOMBINANT, CHO CELLS, GENZYME) [Suspect]
     Indication: GLYCOGEN STORAGE DISEASE TYPE II
     Dosage: 20 MG/KG Q2WKS; IV
     Route: 042
     Dates: start: 20050401, end: 20060401

REACTIONS (2)
  - GENERAL PHYSICAL HEALTH DETERIORATION [None]
  - PNEUMONIA [None]
